FAERS Safety Report 15837261 (Version 2)
Quarter: 2020Q3

REPORT INFORMATION
  Report Type: Spontaneous
  Country: US (occurrence: US)
  Receive Date: 20190117
  Receipt Date: 20200911
  Transmission Date: 20201102
  Serious: Yes (Other)
  Sender: FDA-Public Use
  Company Number: US-ENDO PHARMACEUTICALS INC-2019-016539

PATIENT
  Sex: Female
  Weight: 56.69 kg

DRUGS (5)
  1. XIAFLEX [Suspect]
     Active Substance: COLLAGENASE CLOSTRIDIUM HISTOLYTICUM
     Dosage: UNK (INJECTION LEFT HAND, MIDDLE FINGER)
     Route: 026
     Dates: start: 2014
  2. XIAFLEX [Suspect]
     Active Substance: COLLAGENASE CLOSTRIDIUM HISTOLYTICUM
     Indication: DUPUYTREN^S CONTRACTURE
     Dosage: UNK (LEFT HAND MIDDLE FINGER)
     Route: 026
     Dates: start: 2012
  3. IBRANCE [Concomitant]
     Active Substance: PALBOCICLIB
     Indication: BREAST CANCER
     Dosage: UNK UNKNOWN, UNK
     Route: 048
  4. LETROZOLE. [Concomitant]
     Active Substance: LETROZOLE
     Indication: BREAST CANCER
     Dosage: UNK UNKNOWN, UNKNOWN
     Route: 065
  5. XIAFLEX [Suspect]
     Active Substance: COLLAGENASE CLOSTRIDIUM HISTOLYTICUM
     Dosage: UNK (INJECTION IN RIGHT HAND)
     Route: 026
     Dates: start: 2015

REACTIONS (12)
  - Cellulitis [Unknown]
  - Disease recurrence [Unknown]
  - Breast cancer [Unknown]
  - Injection site scar [Not Recovered/Not Resolved]
  - Tendon rupture [Not Recovered/Not Resolved]
  - Dupuytren^s contracture operation [Recovered/Resolved]
  - Gastrointestinal pain [Unknown]
  - Mastitis [Recovered/Resolved]
  - Peripheral swelling [Unknown]
  - Dupuytren^s contracture [Unknown]
  - Tenderness [Recovered/Resolved]
  - Abdominal pain [Unknown]

NARRATIVE: CASE EVENT DATE: 2012
